FAERS Safety Report 15894178 (Version 1)
Quarter: 2019Q1

REPORT INFORMATION
  Report Type: Spontaneous
  Country: CA (occurrence: CA)
  Receive Date: 20190131
  Receipt Date: 20190131
  Transmission Date: 20190417
  Serious: Yes (Other)
  Sender: FDA-Public Use
  Company Number: CA-CELLTRION INC.-2019CA018451

PATIENT

DRUGS (3)
  1. METHOTREXATE. [Concomitant]
     Active Substance: METHOTREXATE
     Dosage: 15 MG, WEEKLY
     Route: 058
  2. ENBREL [Suspect]
     Active Substance: ETANERCEPT
     Dosage: UNK
     Route: 065
     Dates: start: 201410
  3. INFLIXIMAB PFIZER (UNKNOWN) [Suspect]
     Active Substance: INFLIXIMAB
     Indication: RHEUMATOID ARTHRITIS
     Dosage: 210 MG, UNK
     Route: 042

REACTIONS (8)
  - Cellulitis [Unknown]
  - Hypersensitivity [Unknown]
  - Spinal column stenosis [Unknown]
  - Contraindicated product administered [Unknown]
  - Rash [Unknown]
  - Psoriasis [Unknown]
  - Treatment failure [Unknown]
  - Hypertension [Unknown]
